FAERS Safety Report 7759880-4 (Version None)
Quarter: 2011Q3

REPORT INFORMATION
  Report Type: 
  Country: None (occurrence: None)
  Receive Date: 20110919
  Receipt Date: 20110906
  Transmission Date: 20111222
  Serious: Yes (Other)
  Sender: FDA-Public Use
  Company Number: US-BAYER-2011-028351

PATIENT
  Age: 29 Year
  Sex: Female
  Weight: 104.31 kg

DRUGS (2)
  1. PEPCID [Concomitant]
  2. YASMIN [Suspect]
     Indication: CONTRACEPTION
     Dosage: UNK
     Dates: start: 20050101, end: 20090101

REACTIONS (7)
  - ORGAN FAILURE [None]
  - EMOTIONAL DISTRESS [None]
  - ANXIETY [None]
  - CHOLELITHIASIS [None]
  - INJURY [None]
  - PAIN [None]
  - GALLBLADDER NON-FUNCTIONING [None]
